FAERS Safety Report 4593820-4 (Version None)
Quarter: 2005Q1

REPORT INFORMATION
  Report Type: 
  Country: None (occurrence: None)
  Receive Date: 20050301
  Receipt Date: 20050216
  Transmission Date: 20050727
  Serious: Yes (Life-Threatening, Other)
  Sender: FDA-Public Use
  Company Number: US-AMGEN-US116096

PATIENT
  Sex: Female

DRUGS (7)
  1. ENBREL [Suspect]
     Indication: RHEUMATOID ARTHRITIS
     Dates: start: 19981223, end: 19990101
  2. ARAVA [Concomitant]
  3. METHOTREXATE [Concomitant]
  4. PREDNISONE [Concomitant]
  5. CELEBREX [Concomitant]
  6. RELAFEN [Concomitant]
  7. IRON [Concomitant]

REACTIONS (8)
  - ACUTE ENDOCARDITIS [None]
  - BRONCHOPNEUMONIA [None]
  - CONGESTIVE CARDIOMYOPATHY [None]
  - DERMATITIS EXFOLIATIVE [None]
  - HERPES ZOSTER OPHTHALMIC [None]
  - PNEUMONIA [None]
  - RESPIRATORY FAILURE [None]
  - SJOGREN'S SYNDROME [None]
